FAERS Safety Report 4909588-5 (Version None)
Quarter: 2006Q1

REPORT INFORMATION
  Report Type: 
  Country: None (occurrence: None)
  Receive Date: 20060208
  Receipt Date: 20060127
  Transmission Date: 20060701
  Serious: Yes (Death)
  Sender: FDA-Public Use
  Company Number: 2006015721

PATIENT
  Sex: Male

DRUGS (1)
  1. PHENAZOPYRIDINE HYDROCHLORIDE (PHENAZOPYRIDINE HYDROCHLORIDE) [Suspect]
     Indication: URINARY TRACT INFECTION
     Dosage: (200 MG)

REACTIONS (1)
  - URINARY INCONTINENCE [None]
